FAERS Safety Report 16087717 (Version 2)
Quarter: 2019Q1

REPORT INFORMATION
  Report Type: Spontaneous
  Country: AU (occurrence: AU)
  Receive Date: 20190319
  Receipt Date: 20190325
  Transmission Date: 20190418
  Serious: Yes (Hospitalization)
  Sender: FDA-Public Use
  Company Number: AU-PFIZER INC-2019117857

PATIENT
  Age: 49 Year
  Sex: Female

DRUGS (4)
  1. CLIMARA [Concomitant]
     Active Substance: ESTRADIOL
     Dosage: UNK
  2. OMNIPAQUE [Suspect]
     Active Substance: IOHEXOL
     Indication: IMAGING PROCEDURE
     Dosage: 75 MILLILITER
     Route: 042
     Dates: start: 20181017, end: 20181017
  3. SOMAC [Suspect]
     Active Substance: PANTOPRAZOLE SODIUM
     Dosage: UNK
     Route: 065
  4. CELEBREX [Concomitant]
     Active Substance: CELECOXIB
     Dosage: UNK

REACTIONS (2)
  - Swollen tongue [Recovered/Resolved]
  - Urticaria [Recovered/Resolved]

NARRATIVE: CASE EVENT DATE: 20181017
